FAERS Safety Report 9818810 (Version 1)
Quarter: 2013Q4

REPORT INFORMATION
  Report Type: Spontaneous
  Country: US (occurrence: None)
  Receive Date: 20131223
  Receipt Date: 20131223
  Transmission Date: 20140711
  Serious: Yes (Other)
  Sender: FDA-Public Use
  Company Number: 220811

PATIENT
  Sex: Female

DRUGS (1)
  1. PICATO GEL [Suspect]
     Indication: ACTINIC KERATOSIS
     Dates: start: 201210, end: 201210

REACTIONS (4)
  - Application site erythema [None]
  - Application site pruritus [None]
  - Application site swelling [None]
  - Drug ineffective [None]
